FAERS Safety Report 16312394 (Version 2)
Quarter: 2019Q3

REPORT INFORMATION
  Report Type: Spontaneous
  Country: IT (occurrence: IT)
  Receive Date: 20190515
  Receipt Date: 20190815
  Transmission Date: 20191004
  Serious: Yes (Death, Other)
  Sender: FDA-Public Use
  Company Number: IT-AMGEN-ITASP2019075769

PATIENT
  Age: 60 Year
  Sex: Male

DRUGS (5)
  1. FOSAVANCE [Concomitant]
     Active Substance: ALENDRONATE SODIUM\CHOLECALCIFEROL
     Dosage: UNK
  2. ENBREL [Suspect]
     Active Substance: ETANERCEPT
     Indication: PSORIATIC ARTHROPATHY
     Dosage: 50 MILLIGRAM, QWK
     Route: 065
     Dates: start: 20170401
  3. SIMVASTATIN. [Concomitant]
     Active Substance: SIMVASTATIN
     Dosage: 20 MILLIGRAM
  4. XIGDUO XR [Concomitant]
     Active Substance: DAPAGLIFLOZIN PROPANEDIOL\METFORMIN HYDROCHLORIDE
     Dosage: 2 DOSAGE FORM
  5. MOBIC [Concomitant]
     Active Substance: MELOXICAM
     Dosage: 15 MILLIGRAM

REACTIONS (9)
  - Vomiting [Fatal]
  - Hyperpyrexia [Fatal]
  - Blood lactate dehydrogenase increased [Unknown]
  - Haematuria [Fatal]
  - Anaemia [Fatal]
  - Coombs test positive [Unknown]
  - Nausea [Fatal]
  - Haptoglobin increased [Unknown]
  - Polydipsia [Fatal]

NARRATIVE: CASE EVENT DATE: 20190227
